FAERS Safety Report 6879409-2 (Version None)
Quarter: 2010Q3

REPORT INFORMATION
  Report Type: 
  Country: None (occurrence: None)
  Receive Date: 20100728
  Receipt Date: 20100721
  Transmission Date: 20110219
  Serious: Yes (Other)
  Sender: FDA-Public Use
  Company Number: DE-SP-2010-03943

PATIENT
  Sex: Male
  Weight: 98 kg

DRUGS (1)
  1. IMMUCYST [Suspect]
     Indication: BLADDER CANCER
     Route: 043
     Dates: start: 20100625, end: 20100625

REACTIONS (4)
  - ARTHRALGIA [None]
  - ARTHRITIS [None]
  - HYPOKINESIA [None]
  - JOINT SWELLING [None]
